FAERS Safety Report 9018857 (Version 2)
Quarter: 2014Q3

REPORT INFORMATION
  Report Type: Spontaneous
  Country: US (occurrence: US)
  Receive Date: 20130118
  Receipt Date: 20140808
  Transmission Date: 20150326
  Serious: Yes (Death, Other)
  Sender: FDA-Public Use
  Company Number: US-009507513-2011SP028094

PATIENT
  Sex: Female
  Weight: 61.22 kg

DRUGS (1)
  1. NUVARING [Suspect]
     Active Substance: ETHINYL ESTRADIOL\ETONOGESTREL
     Indication: PRODUCT USED FOR UNKNOWN INDICATION
     Dosage: UNK
     Dates: start: 200904

REACTIONS (11)
  - Cardiac arrest [Unknown]
  - Pleural adhesion [Unknown]
  - Contracted bladder [Unknown]
  - Dilatation ventricular [Unknown]
  - Pericardial effusion [Unknown]
  - Pulmonary infarction [Unknown]
  - Pleural effusion [Unknown]
  - Pulmonary embolism [Fatal]
  - Abdominal pain [Unknown]
  - Cardiac failure acute [Fatal]
  - Pulmonary haemorrhage [Unknown]

NARRATIVE: CASE EVENT DATE: 20090513
